FAERS Safety Report 17468990 (Version 1)
Quarter: 2020Q1

REPORT INFORMATION
  Report Type: Spontaneous
  Country: US (occurrence: US)
  Receive Date: 20200227
  Receipt Date: 20200227
  Transmission Date: 20200409
  Serious: No
  Sender: FDA-Public Use
  Company Number: US-AEGERION PHARMACEUTICAL, INC-AEGR004671

PATIENT
  Sex: Female
  Weight: 10.88 kg

DRUGS (2)
  1. FLINTSTONES MULTIPLE VITAMINS      /07504101/ [Concomitant]
     Indication: PRODUCT USED FOR UNKNOWN INDICATION
  2. MYALEPT [Suspect]
     Active Substance: METRELEPTIN
     Indication: LIPODYSTROPHY ACQUIRED
     Dosage: 0.6 MG (0.12 ML), QD
     Route: 058

REACTIONS (2)
  - Viral infection [Unknown]
  - Nasopharyngitis [Unknown]
